FAERS Safety Report 7194305-1 (Version None)
Quarter: 2010Q4

REPORT INFORMATION
  Report Type: 
  Country: None (occurrence: None)
  Receive Date: 20101124
  Receipt Date: 20100927
  Transmission Date: 20110411
  Serious: No
  Sender: FDA-Public Use
  Company Number: 019460

PATIENT
  Sex: Female
  Weight: 74.4 kg

DRUGS (5)
  1. LACOSAMIDE [Suspect]
     Indication: CONVULSION
     Dosage: (400 MG BID ORAL) ; (200 MG BID ORAL)
     Route: 048
     Dates: start: 20090101, end: 20100501
  2. LACOSAMIDE [Suspect]
     Indication: CONVULSION
     Dosage: (400 MG BID ORAL) ; (200 MG BID ORAL)
     Route: 048
     Dates: start: 20100501
  3. KEPPRA [Concomitant]
  4. ZYRTEC [Concomitant]
  5. SYMBICORT [Concomitant]

REACTIONS (1)
  - VISION BLURRED [None]
